FAERS Safety Report 6708659-0 (Version None)
Quarter: 2010Q2

REPORT INFORMATION
  Report Type: 
  Country: None (occurrence: None)
  Receive Date: 20100503
  Receipt Date: 20100428
  Transmission Date: 20101027
  Serious: Yes (Death, Other)
  Sender: FDA-Public Use
  Company Number: BR-ABBOTT-10P-020-0641172-00

PATIENT
  Sex: Female

DRUGS (4)
  1. HUMIRA [Suspect]
     Indication: CROHN'S DISEASE
     Dates: start: 20090101
  2. MESALAZINE [Concomitant]
     Indication: DRUG USE FOR UNKNOWN INDICATION
  3. AZATHIOPRINE [Concomitant]
     Indication: DRUG USE FOR UNKNOWN INDICATION
  4. CIPRO [Concomitant]
     Indication: DRUG USE FOR UNKNOWN INDICATION

REACTIONS (5)
  - CROHN'S DISEASE [None]
  - GASTROINTESTINAL NECROSIS [None]
  - INTESTINAL PERFORATION [None]
  - PNEUMONIA [None]
  - SEPTIC SHOCK [None]
